FAERS Safety Report 9479135 (Version 1)
Quarter: 2013Q3

REPORT INFORMATION
  Report Type: Report from Study
  Country: PL (occurrence: PL)
  Receive Date: 20130827
  Receipt Date: 20130827
  Transmission Date: 20140515
  Serious: Yes (Hospitalization)
  Sender: FDA-Public Use
  Company Number: PL-BAYER-2013-102997

PATIENT
  Age: 56 Year
  Sex: Male

DRUGS (2)
  1. ASA [Suspect]
     Indication: CEREBROVASCULAR ACCIDENT PROPHYLAXIS
     Dosage: UNK
  2. ASA [Suspect]
     Indication: ATRIAL FIBRILLATION

REACTIONS (1)
  - Transient ischaemic attack [None]
